FAERS Safety Report 8118659-4 (Version None)
Quarter: 2011Q4

REPORT INFORMATION
  Report Type: 
  Country: None (occurrence: None)
  Receive Date: 20111227
  Receipt Date: 20111020
  Transmission Date: 20120403
  Serious: No
  Sender: FDA-Public Use
  Company Number: PHEH2011US07017

PATIENT
  Age: 46 Year
  Sex: Male

DRUGS (3)
  1. ALANTHRO PIN [Concomitant]
  2. ACETAMINOPHEN [Concomitant]
  3. GILENYA [Suspect]
     Indication: MULTIPLE SCLEROSIS
     Dosage: 0.5 MG, QD, ORAL
     Route: 048
     Dates: start: 20111012

REACTIONS (4)
  - THINKING ABNORMAL [None]
  - BALANCE DISORDER [None]
  - HEAD TITUBATION [None]
  - GAIT DISTURBANCE [None]
